FAERS Safety Report 5855013-X (Version None)
Quarter: 2008Q3

REPORT INFORMATION
  Report Type: 
  Country: None (occurrence: None)
  Receive Date: 20080822
  Receipt Date: 20080513
  Transmission Date: 20090109
  Serious: No
  Sender: FDA-Public Use
  Company Number: US-ABBOTT-08P-163-0452096-00

PATIENT
  Sex: Male
  Weight: 72.64 kg

DRUGS (1)
  1. SYNTHROID [Suspect]
     Indication: AUTOIMMUNE THYROIDITIS
     Route: 048
     Dates: start: 20070401

REACTIONS (3)
  - ACCIDENTAL OVERDOSE [None]
  - FEELING HOT [None]
  - HEART RATE INCREASED [None]
